FAERS Safety Report 24691338 (Version 1)
Quarter: 2024Q4

REPORT INFORMATION
  Report Type: Spontaneous
  Country: US (occurrence: None)
  Receive Date: 20241202
  Receipt Date: 20241202
  Transmission Date: 20250115
  Serious: Yes (Disabling)
  Sender: Public
  Company Number: None

PATIENT
  Age: 79 Year
  Sex: Female
  Weight: 85.5 kg

DRUGS (11)
  1. VOWST [Suspect]
     Active Substance: DONOR HUMAN STOOL SPORES (ETHANOL TREATED)
     Indication: Clostridium difficile infection
     Dosage: 12 CAPSULES ORAL?
     Route: 048
     Dates: start: 20241009, end: 20241011
  2. VOWST [Suspect]
     Active Substance: DONOR HUMAN STOOL SPORES (ETHANOL TREATED)
     Indication: Infection
  3. Amlod/Valsar [Concomitant]
  4. CLOPIDOGREL [Concomitant]
     Active Substance: CLOPIDOGREL BISULFATE
  5. ROSUVASTATIN [Concomitant]
     Active Substance: ROSUVASTATIN
  6. Metoprol Suc [Concomitant]
  7. Levthyroxin [Concomitant]
  8. CRANBERRY JUICE [Concomitant]
     Active Substance: CRANBERRY JUICE
  9. COENZYME Q10 [Concomitant]
     Active Substance: DIETARY SUPPLEMENT\UBIDECARENONE
  10. VITAMINS [Concomitant]
     Active Substance: VITAMINS
  11. Liposomal D3 + K2 [Concomitant]

REACTIONS (6)
  - Diarrhoea [None]
  - Fatigue [None]
  - Constipation [None]
  - Balance disorder [None]
  - Vertigo [None]
  - Gait disturbance [None]

NARRATIVE: CASE EVENT DATE: 20241201
